FAERS Safety Report 14923022 (Version 1)
Quarter: 2018Q2

REPORT INFORMATION
  Report Type: Spontaneous
  Country: FR (occurrence: FR)
  Receive Date: 20180522
  Receipt Date: 20180522
  Transmission Date: 20180711
  Serious: Yes (Other)
  Sender: FDA-Public Use
  Company Number: PHHY2018FR001268

PATIENT
  Age: 71 Year
  Sex: Male
  Weight: 80 kg

DRUGS (6)
  1. PANTOPRAZOLE [Concomitant]
     Active Substance: PANTOPRAZOLE
     Indication: PRODUCT USED FOR UNKNOWN INDICATION
     Dosage: 1 DF, QD STRENGHT: 40 (UNITS NOT PROVIDED)
     Route: 065
  2. OMEPRAZOLE. [Suspect]
     Active Substance: OMEPRAZOLE
     Dosage: 1 DF, QD STRENGTH: 40 (UNITS NOT REPORTED)
     Route: 065
  3. SOTALEX [Suspect]
     Active Substance: SOTALOL
     Dosage: 1 DF, QD STRENGHT: 80 (UNITS NOT PROVIDED)
     Route: 065
  4. INEGY [Suspect]
     Active Substance: EZETIMIBE\SIMVASTATIN
     Indication: PRODUCT USED FOR UNKNOWN INDICATION
     Dosage: 1 DF, QD
     Route: 048
     Dates: start: 2015
  5. NOOTROPYL [Concomitant]
     Active Substance: PIRACETAM
     Indication: MEMORY IMPAIRMENT
     Dosage: 3 DF, QD STRENGTH: 800 (UNITS NOT PROVIDED)
     Route: 065
  6. DOMPERIDONE [Concomitant]
     Active Substance: DOMPERIDONE
     Indication: OESOPHAGITIS
     Dosage: 1 DF, QD STRENGTH: 10 (UNITS NOT PROVIDED)
     Route: 065

REACTIONS (6)
  - Blood creatine phosphokinase decreased [Recovered/Resolved]
  - Tachycardia [Unknown]
  - Calculus urinary [Unknown]
  - Pancreatitis [Unknown]
  - Drug ineffective [Unknown]
  - Low density lipoprotein increased [Unknown]

NARRATIVE: CASE EVENT DATE: 2017
